FAERS Safety Report 9250791 (Version 1)
Quarter: 2013Q2

REPORT INFORMATION
  Report Type: Spontaneous
  Country: US (occurrence: US)
  Receive Date: 20130424
  Receipt Date: 20130424
  Transmission Date: 20140414
  Serious: Yes (Hospitalization)
  Sender: FDA-Public Use
  Company Number: US-BAYER-2013-049487

PATIENT
  Age: 27 Year
  Sex: Female

DRUGS (5)
  1. YAZ [Suspect]
  2. YASMIN [Suspect]
  3. MELOXICAM [Concomitant]
     Dosage: 15 MG, UNK
     Dates: start: 20010208
  4. ACETAMINOPHEN W/HYDROCODONE [Concomitant]
     Dosage: 5-500 MG, UNK
     Dates: start: 20110818
  5. DEXAMETHASONE W/TOBRAMYCIN [Concomitant]
     Dosage: UNK
     Route: 047
     Dates: start: 20110808

REACTIONS (1)
  - Deep vein thrombosis [Recovered/Resolved]
